FAERS Safety Report 6412800-7 (Version None)
Quarter: 2009Q4

REPORT INFORMATION
  Report Type: 
  Country: None (occurrence: None)
  Receive Date: 20091023
  Receipt Date: 20091020
  Transmission Date: 20100525
  Serious: Yes (Hospitalization)
  Sender: FDA-Public Use
  Company Number: DE-CVT-090552

PATIENT

DRUGS (3)
  1. RANEXA [Suspect]
     Indication: ANGINA PECTORIS
     Dosage: 375 MG, BID
     Route: 048
     Dates: start: 20090101
  2. BISOPROLOL                         /00802601/ [Concomitant]
     Dosage: 10 MG, UNK
  3. FLUVASTATIN                        /01224501/ [Concomitant]

REACTIONS (3)
  - DIZZINESS [None]
  - FALL [None]
  - WOUND [None]
